FAERS Safety Report 17129481 (Version 1)
Quarter: 2019Q4

REPORT INFORMATION
  Report Type: Spontaneous
  Country: JP (occurrence: JP)
  Receive Date: 20191209
  Receipt Date: 20191209
  Transmission Date: 20200122
  Serious: Yes (Other)
  Sender: FDA-Public Use
  Company Number: JP-PFIZER INC-2019525868

PATIENT

DRUGS (1)
  1. SUNITINIB MALATE. [Suspect]
     Active Substance: SUNITINIB MALATE
     Dosage: UNK
     Dates: start: 201603

REACTIONS (2)
  - Osteonecrosis of jaw [Recovering/Resolving]
  - Peri-implantitis [Recovering/Resolving]

NARRATIVE: CASE EVENT DATE: 2016
